FAERS Safety Report 10111600 (Version 1)
Quarter: 2014Q2

REPORT INFORMATION
  Report Type: Spontaneous
  Country: US (occurrence: US)
  Receive Date: 20140425
  Receipt Date: 20140425
  Transmission Date: 20141212
  Serious: Yes (Other)
  Sender: FDA-Public Use
  Company Number: US-TEVA-477536USA

PATIENT
  Age: 8 Year
  Sex: 0

DRUGS (5)
  1. IRINOTECAN [Suspect]
     Indication: OPTIC GLIOMA
     Route: 065
  2. IRINOTECAN [Suspect]
     Indication: OPTIC GLIOMA
     Route: 065
  3. BEVACIZUMAB [Suspect]
     Indication: OPTIC GLIOMA
     Route: 065
  4. BEVACIZUMAB [Suspect]
     Indication: OPTIC GLIOMA
     Dosage: THEN 10 MG/KG EVERY 2 WEEKS
     Route: 065
  5. BEVACIZUMAB [Suspect]
     Indication: OPTIC GLIOMA
     Route: 065

REACTIONS (3)
  - Posterior reversible encephalopathy syndrome [Recovered/Resolved]
  - Fatigue [Unknown]
  - Gastrointestinal toxicity [Unknown]
